FAERS Safety Report 17306127 (Version 10)
Quarter: 2020Q3

REPORT INFORMATION
  Report Type: Report from Study
  Country: IL (occurrence: IL)
  Receive Date: 20200123
  Receipt Date: 20200709
  Transmission Date: 20201102
  Serious: Yes (Hospitalization, Other)
  Sender: FDA-Public Use
  Company Number: NVSC2020IL014133

PATIENT
  Age: 62 Year
  Sex: Female
  Weight: 77 kg

DRUGS (4)
  1. AFINITOR [Suspect]
     Active Substance: EVEROLIMUS
     Dosage: 10 MG, QD
     Route: 048
  2. AFINITOR [Suspect]
     Active Substance: EVEROLIMUS
     Dosage: 5 MG, QD
     Route: 048
     Dates: start: 20200304, end: 20200510
  3. AFINITOR [Suspect]
     Active Substance: EVEROLIMUS
     Indication: BREAST CANCER
     Dosage: 10 MG, QD
     Route: 048
     Dates: start: 20191219
  4. AFINITOR [Suspect]
     Active Substance: EVEROLIMUS
     Dosage: 5 MG, QD
     Route: 048
     Dates: start: 20200512, end: 20200514

REACTIONS (25)
  - Cough [Recovered/Resolved]
  - Malignant neoplasm progression [Unknown]
  - Respiration abnormal [Recovered/Resolved]
  - Stomatitis [Not Recovered/Not Resolved]
  - Insomnia [Not Recovered/Not Resolved]
  - Pharyngitis [Not Recovered/Not Resolved]
  - Pyrexia [Not Recovered/Not Resolved]
  - Breast cancer [Unknown]
  - Head injury [Recovering/Resolving]
  - Asthenia [Not Recovered/Not Resolved]
  - Blood glucose increased [Recovering/Resolving]
  - Lymphadenopathy [Recovering/Resolving]
  - Joint dislocation [Not Recovered/Not Resolved]
  - Rib fracture [Unknown]
  - Fatigue [Not Recovered/Not Resolved]
  - Decreased appetite [Recovering/Resolving]
  - Dysphagia [Not Recovered/Not Resolved]
  - Influenza [Recovered/Resolved]
  - Chills [Not Recovered/Not Resolved]
  - Weight decreased [Unknown]
  - Dizziness [Recovered/Resolved]
  - Muscle disorder [Recovered/Resolved]
  - Night sweats [Recovered/Resolved]
  - Bone pain [Recovering/Resolving]
  - Back pain [Not Recovered/Not Resolved]

NARRATIVE: CASE EVENT DATE: 20200106
